FAERS Safety Report 8875084 (Version 2)
Quarter: 2012Q4

REPORT INFORMATION
  Report Type: 
  Country: AT (occurrence: AT)
  Receive Date: 20121023
  Receipt Date: 20121113
  Transmission Date: 20130627
  Serious: Yes (Death, Life-Threatening, Hospitalization)
  Sender: FDA-Public Use
  Company Number: AT-ELI_LILLY_AND_COMPANY-AT201210005852

PATIENT
  Sex: Male
  Weight: 90 kg

DRUGS (9)
  1. EFIENT [Suspect]
     Indication: ACUTE MYOCARDIAL INFARCTION
     Dosage: 60 mg, single
     Route: 048
     Dates: start: 20100628
  2. EFIENT [Suspect]
     Dosage: 10 mg, qd
     Route: 048
     Dates: start: 20100629
  3. ASPIRIN [Concomitant]
     Dosage: 300-500 mg loading dose
  4. ASPIRIN [Concomitant]
     Dosage: 100 mg, qd
  5. SORTIS [Concomitant]
     Dosage: 40 mg, qd
  6. NICOTINELL TTS [Concomitant]
     Dosage: 14 ug, qd
  7. LISINOPRIL [Concomitant]
     Dosage: 5 mg, qd
  8. NOMEXOR [Concomitant]
     Dosage: 5 mg, qd
  9. HEPARIN [Concomitant]
     Dosage: UNK

REACTIONS (2)
  - Myocardial infarction [Fatal]
  - Ventricular fibrillation [Not Recovered/Not Resolved]
